FAERS Safety Report 24715361 (Version 4)
Quarter: 2025Q2

REPORT INFORMATION
  Report Type: Spontaneous
  Country: US (occurrence: US)
  Receive Date: 20241210
  Receipt Date: 20250615
  Transmission Date: 20250717
  Serious: No
  Sender: SANOFI AVENTIS
  Company Number: US-SA-2024SA361036

PATIENT
  Age: 63 Year
  Sex: Male

DRUGS (3)
  1. DUPIXENT [Suspect]
     Active Substance: DUPILUMAB
     Indication: Eczema
     Dosage: 300 MG, QOW
     Route: 058
     Dates: start: 2024
  2. DUPIXENT [Suspect]
     Active Substance: DUPILUMAB
     Indication: Dermatitis atopic
     Route: 058
     Dates: start: 20241122, end: 20241122
  3. HYDROQUINONE [Concomitant]
     Active Substance: HYDROQUINONE

REACTIONS (11)
  - Initial insomnia [Unknown]
  - Loss of personal independence in daily activities [Unknown]
  - Mood altered [Unknown]
  - Lip swelling [Unknown]
  - Pruritus [Recovered/Resolved]
  - Erythema [Recovering/Resolving]
  - Dermatitis atopic [Unknown]
  - Pruritus [Unknown]
  - Therapeutic response shortened [Unknown]
  - Rash [Recovering/Resolving]
  - Product storage error [Unknown]

NARRATIVE: CASE EVENT DATE: 20240101
